FAERS Safety Report 7326711-6 (Version None)
Quarter: 2011Q1

REPORT INFORMATION
  Report Type: 
  Country: None (occurrence: None)
  Receive Date: 20110302
  Receipt Date: 20100603
  Transmission Date: 20110831
  Serious: Yes (Other)
  Sender: FDA-Public Use
  Company Number: US-PFIZER INC-2010070574

PATIENT
  Sex: Female
  Weight: 68 kg

DRUGS (4)
  1. SUDAFED 12 HOUR [Concomitant]
     Dosage: UNK
  2. VFEND [Suspect]
     Indication: SINUSITIS FUNGAL
     Dosage: 200 MG, 2X/DAY
     Route: 048
     Dates: start: 20100428, end: 20100513
  3. ALEVE [Concomitant]
     Dosage: UNK
  4. EXCEDRIN (MIGRAINE) [Concomitant]
     Dosage: UNK

REACTIONS (2)
  - SKIN EXFOLIATION [None]
  - DRUG INEFFECTIVE [None]
